FAERS Safety Report 9269308 (Version 6)
Quarter: 2017Q4

REPORT INFORMATION
  Report Type: Spontaneous
  Country: US (occurrence: US)
  Receive Date: 20130503
  Receipt Date: 20171120
  Transmission Date: 20180321
  Serious: Yes (Hospitalization)
  Sender: FDA-Public Use
  Company Number: US-PFIZER INC-2013136070

PATIENT
  Age: 59 Year
  Sex: Female
  Weight: 40.82 kg

DRUGS (16)
  1. PAPAYA ENZYME [Concomitant]
     Indication: SUPPLEMENTATION THERAPY
     Dosage: 2 DF, DAILY (20MG: PAPAYA; 40MG: PAPAIN)
     Dates: start: 2017
  2. ZYRTEC [Concomitant]
     Active Substance: CETIRIZINE HYDROCHLORIDE
     Indication: HYPERSENSITIVITY
     Dosage: 10 MG, ONCE A DAY (EACH DAY)
     Route: 048
     Dates: start: 1995
  3. ZYRTEC [Concomitant]
     Active Substance: CETIRIZINE HYDROCHLORIDE
     Dosage: UNK
     Dates: start: 1989
  4. SUTENT [Suspect]
     Active Substance: SUNITINIB MALATE
     Dosage: 25 MG, 1X/DAY
  5. PROBIOTIC [Concomitant]
     Active Substance: PROBIOTICS NOS
     Indication: DYSPEPSIA
     Dosage: 1 DF, DAILY (10 PROBIOTIC STRAINS)
     Route: 048
     Dates: start: 2012
  6. PAPAYA ENZYME [Concomitant]
     Indication: NUTRITIONAL SUPPLEMENTATION
     Dosage: UNK, 1X/DAY (1 OR 2 TABLETS PER DAY)
  7. SUTENT [Suspect]
     Active Substance: SUNITINIB MALATE
     Dosage: 25 MG, CYCLIC (ONE CAPSULE DAILY FOR 14 DAYS AND THEN 2 WEEKS OFF)
     Route: 048
     Dates: start: 2012
  8. STOOL SOFTENER (DOCUSATE) [Concomitant]
     Active Substance: DOCUSATE
     Indication: CONSTIPATION
     Dosage: 100 MG, 1X/DAY (3 SOFT GELS BEFORE BEDTIME; 3 SOFT GELS PER DAY)
     Route: 048
     Dates: start: 2011
  9. VITAMIN D3 [Concomitant]
     Active Substance: CHOLECALCIFEROL
     Indication: SUPPLEMENTATION THERAPY
     Dosage: 1000 IU, DAILY
     Dates: start: 2013
  10. VITAMIN B12 [Concomitant]
     Active Substance: CYANOCOBALAMIN
     Indication: METABOLIC DISORDER
     Dosage: 500 MG, DAILY
     Dates: start: 2015
  11. SUTENT [Suspect]
     Active Substance: SUNITINIB MALATE
     Dosage: 50 MG, UNK
     Route: 048
  12. CENTRUM SILVER /02363801/ [Concomitant]
     Active Substance: MINERALS\VITAMINS
     Indication: NUTRITIONAL SUPPLEMENTATION
     Dosage: 1 DF, DAILY
     Dates: start: 1982
  13. CENTRUM SILVER /02363801/ [Concomitant]
     Active Substance: MINERALS\VITAMINS
     Indication: SUPPLEMENTATION THERAPY
     Dosage: 2 DF, 1X/DAY
     Dates: start: 2012
  14. SUTENT [Suspect]
     Active Substance: SUNITINIB MALATE
     Indication: GASTROINTESTINAL STROMAL TUMOUR
     Dosage: 25 MG, CYCLIC (2 WEEKS ON/2 WEEKS OFF)
     Route: 048
     Dates: start: 2010
  15. SUTENT [Suspect]
     Active Substance: SUNITINIB MALATE
     Dosage: 25 MG, CYCLIC (STAYS ON THE THERAPY FOR FOUR WEEKS AND THEN STOPS THE THERAPY FOR 3 WEEKS)
     Route: 048
     Dates: start: 201206
  16. PROBIOTIC [Concomitant]
     Active Substance: PROBIOTICS NOS
     Dosage: 1 DF, DAILY (10 PROBIOTIC STRAINS)
     Route: 048
     Dates: start: 2013

REACTIONS (15)
  - Alopecia [Unknown]
  - Nausea [Unknown]
  - Blister [Unknown]
  - Dry skin [Unknown]
  - Vomiting [Unknown]
  - Constipation [Recovered/Resolved]
  - Drug dose omission [Not Recovered/Not Resolved]
  - Dyspepsia [Recovered/Resolved]
  - Abdominal discomfort [Unknown]
  - Yellow skin [Unknown]
  - Pain of skin [Unknown]
  - Amnesia [Not Recovered/Not Resolved]
  - Insomnia [Recovered/Resolved]
  - Ageusia [Not Recovered/Not Resolved]
  - Oral herpes [Unknown]

NARRATIVE: CASE EVENT DATE: 201206
